FAERS Safety Report 12690065 (Version 2)
Quarter: 2017Q1

REPORT INFORMATION
  Report Type: Spontaneous
  Country: US (occurrence: US)
  Receive Date: 20160826
  Receipt Date: 20170219
  Transmission Date: 20170428
  Serious: No
  Sender: FDA-Public Use
  Company Number: US-LUNDBECK-DKLU2016531

PATIENT
  Age: 70 Year
  Sex: Male

DRUGS (2)
  1. NORTHERA [Suspect]
     Active Substance: DROXIDOPA
     Dosage: TITRATION COMPLETE
     Route: 065
     Dates: start: 201606
  2. NORTHERA [Suspect]
     Active Substance: DROXIDOPA
     Indication: ORTHOSTATIC HYPOTENSION
     Dosage: SCHEDULE B
     Route: 065
     Dates: start: 20160611

REACTIONS (8)
  - Fatigue [Unknown]
  - Asthenia [Unknown]
  - Blood pressure decreased [Unknown]
  - Gait disturbance [Unknown]
  - Fall [Unknown]
  - Blood pressure fluctuation [Unknown]
  - Condition aggravated [Unknown]
  - Presyncope [Unknown]

NARRATIVE: CASE EVENT DATE: 201607
